FAERS Safety Report 7504460 (Version 2)
Quarter: 2019Q1

REPORT INFORMATION
  Report Type: Spontaneous
  Country: GB (occurrence: GB)
  Receive Date: 20100728
  Receipt Date: 20190208
  Transmission Date: 20190418
  Serious: Yes (Disabling)
  Sender: FDA-Public Use
  Company Number: GB-PFIZER INC-2010090056

PATIENT
  Age: 66 Year
  Sex: Female
  Weight: 94.8 kg

DRUGS (2)
  1. THYROXINE [Concomitant]
     Active Substance: LEVOTHYROXINE
     Dosage: UNK
  2. CHAMPIX [Suspect]
     Active Substance: VARENICLINE TARTRATE
     Indication: SMOKING CESSATION THERAPY
     Dosage: UNK
     Route: 048

REACTIONS (4)
  - Hyperthyroidism [Unknown]
  - Thyroxine decreased [Unknown]
  - Thyroxine increased [Unknown]
  - Malaise [Unknown]
